FAERS Safety Report 12109111 (Version 1)
Quarter: 2016Q1

REPORT INFORMATION
  Report Type: Report from Study
  Country: BR (occurrence: BR)
  Receive Date: 20160224
  Receipt Date: 20160224
  Transmission Date: 20160526
  Serious: Yes (Disabling, Other)
  Sender: FDA-Public Use
  Company Number: PHHY2016BR023655

PATIENT
  Sex: Female

DRUGS (1)
  1. DIOVAN HCT [Suspect]
     Active Substance: HYDROCHLOROTHIAZIDE\VALSARTAN
     Indication: PRODUCT USED FOR UNKNOWN INDICATION
     Dosage: (VALSARTAN 80 MG, HYDROCHLOROTHIAZIDE 12.5 MG), UNK
     Route: 065

REACTIONS (4)
  - Accident [Unknown]
  - Blood pressure increased [Unknown]
  - Flavivirus infection [Unknown]
  - Malaise [Unknown]
